FAERS Safety Report 11746488 (Version 1)
Quarter: 2015Q4

REPORT INFORMATION
  Report Type: Report from Study
  Country: NL (occurrence: NL)
  Receive Date: 20151117
  Receipt Date: 20151117
  Transmission Date: 20160304
  Serious: Yes (Death)
  Sender: FDA-Public Use
  Company Number: NL-MYLANLABS-2015M1039727

PATIENT

DRUGS (3)
  1. GEMTUZUMAB OZOGAMICIN [Suspect]
     Active Substance: GEMTUZUMAB OZOGAMICIN
     Indication: MYELODYSPLASTIC SYNDROME
     Dosage: 5 MG/M2 ON DAY 7 AS 1-HOUR INFUSION
     Route: 050
  2. CYTARABINE. [Suspect]
     Active Substance: CYTARABINE
     Indication: MYELODYSPLASTIC SYNDROME
     Dosage: 100 MG/M2/DAY CONTINUOUS INFUSION FOR 10 DAYS
     Route: 050
  3. IDARUBICIN HYDROCHLORIDE. [Suspect]
     Active Substance: IDARUBICIN HYDROCHLORIDE
     Indication: MYELODYSPLASTIC SYNDROME
     Dosage: 12 MG/M2/DAY ON DAYS 1, 3, AND 5 AS 5 MINUTES INFUSION
     Route: 050

REACTIONS (1)
  - Cardiac arrest [Fatal]
